FAERS Safety Report 9459130 (Version 1)
Quarter: 2013Q3

REPORT INFORMATION
  Report Type: Report from Study
  Country: ES (occurrence: ES)
  Receive Date: 20130814
  Receipt Date: 20130814
  Transmission Date: 20140515
  Serious: Yes (Other)
  Sender: FDA-Public Use
  Company Number: ES-BAXTER-2013BAX032353

PATIENT
  Sex: 0

DRUGS (3)
  1. UROMITEXAN [Suspect]
     Indication: PRODUCT USED FOR UNKNOWN INDICATION
     Route: 065
  2. GRANULOCYTE COLONY STIMULATING FACTOR [Suspect]
     Indication: PROPHYLAXIS
     Route: 065
  3. TRONOXAL 1G INYECTABLE [Suspect]
     Indication: SARCOMA
     Dosage: 12 GM/M2

REACTIONS (1)
  - Febrile neutropenia [Unknown]
